FAERS Safety Report 23070555 (Version 2)
Quarter: 2023Q4

REPORT INFORMATION
  Report Type: Spontaneous
  Country: US (occurrence: US)
  Receive Date: 20231016
  Receipt Date: 20231219
  Transmission Date: 20240110
  Serious: Yes (Other)
  Sender: FDA-Public Use
  Company Number: US-KOREA IPSEN Pharma-2023-23625

PATIENT
  Age: 73 Year
  Sex: Female
  Weight: 69.39 kg

DRUGS (18)
  1. TAZVERIK [Suspect]
     Active Substance: TAZEMETOSTAT HYDROBROMIDE
     Indication: Follicular lymphoma
     Dosage: 800 MILLIGRAM: 2 TABLETS (400 MG TWICE A DAY)
     Route: 048
  2. SYNTHROID [Concomitant]
     Active Substance: LEVOTHYROXINE SODIUM
     Indication: Hypothyroidism
     Dosage: 125 MCG/ DAY
     Route: 048
  3. DIGOXIN [Concomitant]
     Active Substance: DIGOXIN
     Dosage: 125 MCG/ DAY
     Route: 048
  4. COUMADIN [Concomitant]
     Active Substance: WARFARIN SODIUM
     Dosage: 5 MG/ DAY
     Route: 048
  5. ALDACTONE [Concomitant]
     Active Substance: SPIRONOLACTONE
  6. ALLOPURINOL [Concomitant]
     Active Substance: ALLOPURINOL
  7. COLCHICINE [Concomitant]
     Active Substance: COLCHICINE
  8. DEXAMETHASONE [Concomitant]
     Active Substance: DEXAMETHASONE
  9. ESCITALOPRAM [Concomitant]
     Active Substance: ESCITALOPRAM OXALATE
  10. LEVOTHYROXINE [Concomitant]
     Active Substance: LEVOTHYROXINE
  11. METOLAZONE [Concomitant]
     Active Substance: METOLAZONE
  12. OSCAL 500/200 D-3 POTASSIUM [Concomitant]
     Dosage: 500/200 D-3 POTASSIUM
  13. QC TURMERIC COMPLEX [Concomitant]
  14. TORSEMIDE [Concomitant]
     Active Substance: TORSEMIDE
  15. TRELEGY ELLIPTA [Concomitant]
     Active Substance: FLUTICASONE FUROATE\UMECLIDINIUM BROMIDE\VILANTEROL TRIFENATATE
  16. VITAMIN D3 [Concomitant]
     Active Substance: CHOLECALCIFEROL
  17. WARFARIN [Concomitant]
     Active Substance: WARFARIN
  18. ZINC GLUCONATE [Concomitant]
     Active Substance: ZINC GLUCONATE

REACTIONS (2)
  - Thrombocytopenia [Unknown]
  - Diarrhoea [Recovered/Resolved]
